FAERS Safety Report 7199189-3 (Version None)
Quarter: 2010Q4

REPORT INFORMATION
  Report Type: 
  Country: None (occurrence: None)
  Receive Date: 20101215
  Receipt Date: 20101201
  Transmission Date: 20110411
  Serious: Yes (Death)
  Sender: FDA-Public Use
  Company Number: AE 2010-399

PATIENT
  Age: 78 Year
  Sex: Male

DRUGS (12)
  1. FAZACLO ODT [Suspect]
     Indication: ABNORMAL BEHAVIOUR
     Dosage: 100 MG DAILY PO
     Route: 048
     Dates: start: 20100806, end: 20101126
  2. FAZACLO ODT [Suspect]
     Indication: DEMENTIA
     Dosage: 100 MG DAILY PO
     Route: 048
     Dates: start: 20100806, end: 20101126
  3. ZETIA [Concomitant]
  4. TRAMADOL [Concomitant]
  5. LEXAPRO [Concomitant]
  6. PRILOSEC [Concomitant]
  7. LIDOCAINE MOUTH WASH [Concomitant]
  8. ASPIRIN [Concomitant]
  9. DURAGESIC-100 [Concomitant]
  10. ATIVAN [Concomitant]
  11. DEPAKOTE [Concomitant]
  12. TYLENOL-500 [Concomitant]

REACTIONS (1)
  - MULTI-ORGAN FAILURE [None]
